FAERS Safety Report 5581558-6 (Version None)
Quarter: 2008Q1

REPORT INFORMATION
  Report Type: 
  Country: None (occurrence: None)
  Receive Date: 20080104
  Receipt Date: 20071218
  Transmission Date: 20080703
  Serious: Yes (Death, Life-Threatening)
  Sender: FDA-Public Use
  Company Number: NO-BAYER-200718522GPV

PATIENT
  Age: 81 Year
  Sex: Female

DRUGS (3)
  1. CIPROXIN [Suspect]
     Indication: PNEUMONIA LEGIONELLA
     Route: 065
     Dates: start: 20071028, end: 20071107
  2. MAREVAN [Interacting]
     Indication: ATRIAL FIBRILLATION
     Route: 048
     Dates: start: 20071026, end: 20071029
  3. KLEXANE [Interacting]
     Indication: ATRIAL FIBRILLATION
     Route: 058
     Dates: start: 20071026, end: 20071029

REACTIONS (4)
  - DRUG INTERACTION [None]
  - INTRA-ABDOMINAL HAEMATOMA [None]
  - NEUTROPENIA [None]
  - PULMONARY EMBOLISM [None]
